FAERS Safety Report 13184161 (Version 1)
Quarter: 2017Q1

REPORT INFORMATION
  Report Type: Spontaneous
  Country: US (occurrence: US)
  Receive Date: 20170203
  Receipt Date: 20170203
  Transmission Date: 20170428
  Serious: No
  Sender: FDA-Public Use
  Company Number: US-BAYER-2017-019458

PATIENT
  Age: 5 Year
  Sex: Female
  Weight: 18.14 kg

DRUGS (2)
  1. CLARITIN [Suspect]
     Active Substance: LORATADINE
     Indication: NASOPHARYNGITIS
     Dosage: 15 ML, UNK
  2. CLARITIN [Suspect]
     Active Substance: LORATADINE
     Indication: HYPERSENSITIVITY
     Dosage: 1 DF, UNK (HALF TEASPOON)
     Route: 048
     Dates: start: 20170131, end: 20170131

REACTIONS (3)
  - Nervousness [Unknown]
  - Accidental exposure to product by child [Unknown]
  - Vomiting [Unknown]

NARRATIVE: CASE EVENT DATE: 20170131
